FAERS Safety Report 4987949-6 (Version None)
Quarter: 2006Q2

REPORT INFORMATION
  Report Type: 
  Country: None (occurrence: None)
  Receive Date: 20060501
  Receipt Date: 20060331
  Transmission Date: 20061013
  Serious: Yes (Hospitalization)
  Sender: FDA-Public Use
  Company Number: NL-BOEHRINGER INGELHEIM PHARMACEUTICALS, INC.-2006-NL-00088NL

PATIENT
  Sex: Female

DRUGS (6)
  1. SIFROL 0.7MG [Suspect]
     Indication: NEURODEGENERATIVE DISORDER
     Dosage: 3DD1
     Dates: start: 20041201, end: 20051217
  2. SINEMET [Concomitant]
     Dosage: STRENGTH: 100/25MG  DAILY DOSE: 3DD1 (300/75MG)
     Dates: start: 20020101
  3. CLOZAPINE [Concomitant]
  4. EXELON [Concomitant]
  5. TRANXENE [Concomitant]
     Dosage: AS NEEDED.
  6. MADOPAR DISPER [Concomitant]

REACTIONS (9)
  - AKATHISIA [None]
  - DELIRIUM [None]
  - DELUSION [None]
  - HALLUCINATION, VISUAL [None]
  - PARANOIA [None]
  - PSYCHOTIC DISORDER [None]
  - SCREAMING [None]
  - TIBIA FRACTURE [None]
  - TREATMENT NONCOMPLIANCE [None]
